FAERS Safety Report 6713842-4 (Version None)
Quarter: 2010Q2

REPORT INFORMATION
  Report Type: 
  Country: None (occurrence: None)
  Receive Date: 20100426
  Receipt Date: 20091231
  Transmission Date: 20101027
  Serious: Yes (Hospitalization)
  Sender: FDA-Public Use
  Company Number: 2009BI040625

PATIENT
  Age: 58 Year
  Sex: Male
  Weight: 90.7194 kg

DRUGS (3)
  1. TYSABRI [Suspect]
     Indication: MULTIPLE SCLEROSIS
     Dosage: 300 MG;QM;IV
     Route: 042
     Dates: start: 20090819
  2. LAXATIVE [Concomitant]
  3. FLU VACCINE [Concomitant]

REACTIONS (2)
  - INFLUENZA [None]
  - INTESTINAL OBSTRUCTION [None]
